FAERS Safety Report 4356166-5 (Version None)
Quarter: 2004Q2

REPORT INFORMATION
  Report Type: 
  Country: None (occurrence: None)
  Receive Date: 20040506
  Receipt Date: 20040421
  Transmission Date: 20050107
  Serious: Yes (Death, Hospitalization)
  Sender: FDA-Public Use
  Company Number: 2004IM000453

PATIENT
  Age: 66 Year
  Sex: Female
  Weight: 45 kg

DRUGS (7)
  1. INTERFERON GAMMA-1B (INTERFERON GAMMA-1B) [Suspect]
     Indication: OVARIAN CANCER
     Dosage: 100 UG; TIW; SUBCUTANEOUS
     Route: 058
     Dates: start: 20031030, end: 20040221
  2. CARBOPLATIN [Suspect]
     Indication: OVARIAN CANCER
     Dosage: 773 UG; Q3W; INTRAVENOUS
     Route: 042
     Dates: start: 20031030, end: 20040204
  3. PACLITAXEL [Suspect]
     Indication: OVARIAN CANCER
     Dosage: 252 MG;Q3W;INTRAVENOUS
     Route: 042
     Dates: start: 20031030, end: 20040204
  4. NABILONE [Concomitant]
  5. PANTOLOC [Concomitant]
  6. ZOFRAN [Concomitant]
  7. MAGNOSOLV [Concomitant]

REACTIONS (5)
  - ANAEMIA [None]
  - ASTHENIA [None]
  - DISEASE PROGRESSION [None]
  - FAECALOMA [None]
  - GENERAL PHYSICAL HEALTH DETERIORATION [None]
